FAERS Safety Report 20754470 (Version 2)
Quarter: 2023Q2

REPORT INFORMATION
  Report Type: Spontaneous
  Country: US (occurrence: None)
  Receive Date: 20220426
  Receipt Date: 20230420
  Transmission Date: 20230721
  Serious: No
  Sender: FDA-Public Use
  Company Number: US-ROCHE-2877719

PATIENT
  Sex: Male

DRUGS (2)
  1. ESBRIET [Suspect]
     Active Substance: PIRFENIDONE
     Indication: Idiopathic pulmonary fibrosis
     Dosage: 2 DOSAGE FORMS THRICE A DAY.
     Route: 048
     Dates: start: 20211206
  2. XTANDI [Suspect]
     Active Substance: ENZALUTAMIDE
     Indication: Prostate cancer
     Route: 048
     Dates: start: 202101

REACTIONS (4)
  - Decreased appetite [Unknown]
  - Taste disorder [Unknown]
  - Intentional product misuse [Unknown]
  - Malaise [Unknown]
